FAERS Safety Report 8287954-0 (Version None)
Quarter: 2012Q2

REPORT INFORMATION
  Report Type: 
  Country: None (occurrence: None)
  Receive Date: 20120416
  Receipt Date: 20120406
  Transmission Date: 20120825
  Serious: Yes (Other)
  Sender: FDA-Public Use
  Company Number: US-JNJFOC-20120403861

PATIENT
  Sex: Female
  Weight: 79.38 kg

DRUGS (6)
  1. XARELTO [Suspect]
     Indication: ATRIAL FIBRILLATION
     Route: 048
     Dates: start: 20120101
  2. RESTORIL [Concomitant]
     Indication: SLEEP DISORDER THERAPY
     Route: 048
  3. ALL OTHER THERAPEUTIC PRODUCTS [Concomitant]
     Indication: BONE DISORDER
     Route: 048
     Dates: end: 20120101
  4. FLOVENT [Concomitant]
     Indication: ASTHMA
     Route: 055
  5. VITAMIN D [Concomitant]
     Indication: BONE DISORDER
     Route: 048
  6. ALLEGRA [Concomitant]
     Indication: MULTIPLE ALLERGIES
     Route: 048

REACTIONS (2)
  - RECTAL HAEMORRHAGE [None]
  - HYPERTENSION [None]
